FAERS Safety Report 4608195-1 (Version None)
Quarter: 2005Q1

REPORT INFORMATION
  Report Type: 
  Country: None (occurrence: None)
  Receive Date: 20050311
  Receipt Date: 20050228
  Transmission Date: 20050727
  Serious: Yes (Hospitalization)
  Sender: FDA-Public Use
  Company Number: 2005027416

PATIENT
  Age: 37 Year
  Sex: Female
  Weight: 58 kg

DRUGS (4)
  1. AZULFIDINE EN-TABS [Suspect]
     Indication: RHEUMATOID ARTHRITIS
     Dosage: 1 GRAM, ORAL
     Route: 048
     Dates: start: 20050105, end: 20050118
  2. ETODOLAC [Suspect]
     Indication: ILL-DEFINED DISORDER
     Dosage: ORAL
     Route: 048
  3. ZALTOPROFEN (ZALTOPROFEN) [Concomitant]
  4. RUEFRIEN (AZULENE, LEVOGLUTAMIDE) [Concomitant]

REACTIONS (4)
  - LIVER DISORDER [None]
  - PANCYTOPENIA [None]
  - PSEUDOMONONUCLEOSIS [None]
  - RHABDOMYOLYSIS [None]
